FAERS Safety Report 24303225 (Version 1)
Quarter: 2024Q3

REPORT INFORMATION
  Report Type: Spontaneous
  Country: US (occurrence: None)
  Receive Date: 20240909
  Receipt Date: 20240909
  Transmission Date: 20241017
  Serious: Yes (Death)
  Sender: Public
  Company Number: None

PATIENT
  Age: 71 Year
  Sex: Male
  Weight: 86.4 kg

DRUGS (1)
  1. CARVYKTI [Suspect]
     Active Substance: CILTACABTAGENE AUTOLEUCEL
     Indication: Plasma cell myeloma
     Dates: start: 20240429

REACTIONS (10)
  - Cytokine release syndrome [None]
  - Immune effector cell-associated neurotoxicity syndrome [None]
  - Platelet count decreased [None]
  - Haemoglobin decreased [None]
  - Reduced facial expression [None]
  - Decreased interest [None]
  - Loss of personal independence in daily activities [None]
  - Parkinsonism [None]
  - Resting tremor [None]
  - Cogwheel rigidity [None]

NARRATIVE: CASE EVENT DATE: 20240821
